FAERS Safety Report 8928198 (Version 2)
Quarter: 2013Q4

REPORT INFORMATION
  Report Type: Spontaneous
  Country: US (occurrence: US)
  Receive Date: 20121128
  Receipt Date: 20131008
  Transmission Date: 20140711
  Serious: Yes (Other)
  Sender: FDA-Public Use
  Company Number: PHEH2012US022401

PATIENT
  Sex: Female
  Weight: 39 kg

DRUGS (1)
  1. ILARIS [Suspect]
     Indication: HYPER IGD SYNDROME
     Dosage: 120 MG, QMO
     Route: 058

REACTIONS (3)
  - Syncope [Unknown]
  - Dizziness [Unknown]
  - Vertigo [Unknown]
